FAERS Safety Report 16157144 (Version 1)
Quarter: 2019Q2

REPORT INFORMATION
  Report Type: Report from Study
  Country: US (occurrence: US)
  Receive Date: 20190404
  Receipt Date: 20190404
  Transmission Date: 20190711
  Serious: Yes (Other)
  Sender: FDA-Public Use
  Company Number: US-TEVA-2019-US-1032448

PATIENT

DRUGS (1)
  1. CYTARABINE. [Suspect]
     Active Substance: CYTARABINE
     Indication: ACUTE MYELOID LEUKAEMIA
     Dosage: CYCLE 2; 2G/M2; INITIAL DOSAGE NOT STATED

REACTIONS (3)
  - Ataxia [Recovered/Resolved]
  - Tremor [Recovered/Resolved]
  - Dysmetria [Recovered/Resolved]
